FAERS Safety Report 8048262-6 (Version None)
Quarter: 2012Q1

REPORT INFORMATION
  Report Type: 
  Country: None (occurrence: None)
  Receive Date: 20120117
  Receipt Date: 20120112
  Transmission Date: 20120608
  Serious: Yes (Life-Threatening, Hospitalization)
  Sender: FDA-Public Use
  Company Number: IT-GENZYME-CLOF-1001391

PATIENT
  Sex: Female
  Weight: 23.4 kg

DRUGS (3)
  1. CYCLOPHOSPHAMIDE [Suspect]
     Indication: ACUTE LYMPHOCYTIC LEUKAEMIA
     Dosage: 365 MG, QD
     Route: 042
     Dates: start: 20101125, end: 20101126
  2. EVOLTRA [Suspect]
     Indication: ACUTE LYMPHOCYTIC LEUKAEMIA
     Dosage: 30 MG, ONCE
     Route: 042
     Dates: start: 20101125, end: 20101126
  3. ETOPOSIDE [Suspect]
     Indication: ACUTE LYMPHOCYTIC LEUKAEMIA
     Dosage: 80 MG, QD
     Route: 042
     Dates: start: 20101125, end: 20101126

REACTIONS (3)
  - ACUTE PULMONARY OEDEMA [None]
  - LEFT VENTRICULAR DYSFUNCTION [None]
  - CARDIOMYOPATHY [None]
